FAERS Safety Report 6302657-7 (Version None)
Quarter: 2009Q3

REPORT INFORMATION
  Report Type: 
  Country: None (occurrence: None)
  Receive Date: 20090810
  Receipt Date: 20090417
  Transmission Date: 20100115
  Serious: No
  Sender: FDA-Public Use
  Company Number: A0779325A

PATIENT
  Age: 56 Year
  Sex: Male

DRUGS (3)
  1. TAGAMET HB 200 [Suspect]
  2. COMMIT [Suspect]
  3. COMMIT [Suspect]

REACTIONS (7)
  - BALANCE DISORDER [None]
  - DIZZINESS [None]
  - DRUG ADMINISTRATION ERROR [None]
  - DRUG INEFFECTIVE [None]
  - NERVOUSNESS [None]
  - TREMOR [None]
  - VOMITING [None]
